FAERS Safety Report 12571364 (Version 2)
Quarter: 2016Q3

REPORT INFORMATION
  Report Type: Spontaneous
  Country: US (occurrence: US)
  Receive Date: 20160719
  Receipt Date: 20160720
  Transmission Date: 20161109
  Serious: Yes (Other)
  Sender: FDA-Public Use
  Company Number: US-SAGENTPRD-2016-US-000018

PATIENT
  Age: 79 Year
  Sex: Male
  Weight: 101 kg

DRUGS (2)
  1. HEPARIN SODIUM INJECTION, MDV, 10 ML, 1000 UNIT/ML [Suspect]
     Active Substance: HEPARIN SODIUM
     Route: 042
     Dates: start: 20160418, end: 20160418
  2. HEPARIN SODIUM INJECTION, MDV, 10 ML, 1000 UNIT/ML [Suspect]
     Active Substance: HEPARIN SODIUM
     Route: 042
     Dates: start: 20160418, end: 20160418

REACTIONS (1)
  - Drug ineffective [Unknown]

NARRATIVE: CASE EVENT DATE: 20160418
